FAERS Safety Report 6845782-4 (Version None)
Quarter: 2010Q3

REPORT INFORMATION
  Report Type: 
  Country: None (occurrence: None)
  Receive Date: 20100713
  Receipt Date: 20100707
  Transmission Date: 20110219
  Serious: Yes (Other)
  Sender: FDA-Public Use
  Company Number: 2010SP037779

PATIENT
  Age: 57 Year
  Sex: Female

DRUGS (2)
  1. SAPHRIS [Suspect]
     Indication: BIPOLAR DISORDER
     Dosage: 5 MG; QD;PO
     Route: 048
     Dates: start: 20100627
  2. SEROQUEL [Concomitant]

REACTIONS (4)
  - ENERGY INCREASED [None]
  - FATIGUE [None]
  - RESTLESSNESS [None]
  - SUICIDAL IDEATION [None]
